FAERS Safety Report 23453186 (Version 1)
Quarter: 2024Q1

REPORT INFORMATION
  Report Type: Spontaneous
  Country: US (occurrence: None)
  Receive Date: 20240129
  Receipt Date: 20240129
  Transmission Date: 20240410
  Serious: Yes (Hospitalization)
  Sender: FDA-Public Use
  Company Number: None

PATIENT
  Sex: Male

DRUGS (1)
  1. TOBRAMYCIN [Suspect]
     Active Substance: TOBRAMYCIN
     Indication: Bronchiectasis
     Dosage: 300MG ?INHALE THE CONTENTS OF 1 AMPULE VIA NEBULIZER EVERY 12 HOURS FOR 14 DAYS. ?
     Route: 055
     Dates: start: 202105

REACTIONS (1)
  - Hospitalisation [None]
